FAERS Safety Report 4852883-9 (Version None)
Quarter: 2005Q4

REPORT INFORMATION
  Report Type: 
  Country: None (occurrence: None)
  Receive Date: 20051212
  Receipt Date: 20051122
  Transmission Date: 20060501
  Serious: Yes (Death)
  Sender: FDA-Public Use
  Company Number: USA0511112660

PATIENT
  Age: 88 Year
  Sex: Male

DRUGS (6)
  1. ZYPREXA [Suspect]
     Indication: ANXIETY
     Dosage: 5 MG DAILY (1/D) ORAL
     Route: 048
     Dates: start: 20051102, end: 20051102
  2. LEVODOPA (LEVODOPA) [Concomitant]
  3. MIRAPEX [Concomitant]
  4. LEXAPRO [Concomitant]
  5. FLOMAX [Concomitant]
  6. METFORMIN HCL [Concomitant]

REACTIONS (9)
  - CONDITION AGGRAVATED [None]
  - DYSKINESIA [None]
  - FATIGUE [None]
  - FLUID INTAKE REDUCED [None]
  - MOVEMENT DISORDER [None]
  - POSTURE ABNORMAL [None]
  - RESTLESSNESS [None]
  - SLEEP APNOEA SYNDROME [None]
  - SOMNOLENCE [None]
